FAERS Safety Report 4641904-4 (Version None)
Quarter: 2005Q2

REPORT INFORMATION
  Report Type: 
  Country: None (occurrence: None)
  Receive Date: 20050420
  Receipt Date: 20050405
  Transmission Date: 20051028
  Serious: Yes (Death, Hospitalization)
  Sender: FDA-Public Use
  Company Number: USA050494989

PATIENT
  Sex: Female

DRUGS (3)
  1. SYMBYAX [Suspect]
  2. ZYPREXA [Suspect]
     Indication: BIPOLAR I DISORDER
     Dosage: 2.5 MG
  3. CYMBALTA [Suspect]
     Indication: DEPRESSION
     Dosage: 60 MG
     Dates: start: 20041201

REACTIONS (2)
  - HALLUCINATION [None]
  - HEPATIC FAILURE [None]
